FAERS Safety Report 5042733-2 (Version None)
Quarter: 2006Q2

REPORT INFORMATION
  Report Type: 
  Country: None (occurrence: None)
  Receive Date: 20060627
  Receipt Date: 20060614
  Transmission Date: 20061013
  Serious: Yes (Death)
  Sender: FDA-Public Use
  Company Number: 062-20785-06060539

PATIENT
  Age: 57 Year
  Sex: Male

DRUGS (3)
  1. THALIDOMIDE - PHARMION (THALIDOMIDE) (50 MILLIGRAM, CAPSULES) [Suspect]
     Indication: AMYOTROPHIC LATERAL SCLEROSIS
     Dosage: 100-400MG, DAILY, ORAL
     Route: 048
     Dates: start: 20060220, end: 20060507
  2. THALIDOMIDE - PHARMION (THALIDOMIDE) (50 MILLIGRAM, CAPSULES) [Suspect]
     Indication: AMYOTROPHIC LATERAL SCLEROSIS
     Dosage: 100-400MG, DAILY, ORAL
     Route: 048
     Dates: start: 20060508, end: 20060612
  3. RILUTEK [Concomitant]

REACTIONS (5)
  - COR PULMONALE [None]
  - CORONARY ARTERY DISEASE [None]
  - CORONARY ARTERY STENOSIS [None]
  - SINUS BRADYCARDIA [None]
  - SUDDEN CARDIAC DEATH [None]
